FAERS Safety Report 19589083 (Version 1)
Quarter: 2021Q3

REPORT INFORMATION
  Report Type: Spontaneous
  Country: JP (occurrence: JP)
  Receive Date: 20210721
  Receipt Date: 20210721
  Transmission Date: 20211014
  Serious: Yes (Other)
  Sender: FDA-Public Use
  Company Number: JP-PFIZER INC-2021844467

PATIENT
  Age: 6 Decade
  Sex: Female

DRUGS (4)
  1. CORTRIL [Suspect]
     Active Substance: HYDROCORTISONE
     Dosage: 10 MG (1 TABLET), 1X/DAY (IN THE MORNING)
     Route: 048
     Dates: start: 20210625
  2. CORTRIL [Suspect]
     Active Substance: HYDROCORTISONE
     Indication: ADRENAL INSUFFICIENCY
     Dosage: UNK
     Route: 048
     Dates: start: 201401, end: 2014
  3. CORTRIL [Suspect]
     Active Substance: HYDROCORTISONE
     Dosage: UNK
     Route: 048
     Dates: start: 2017, end: 201811
  4. CORTRIL [Suspect]
     Active Substance: HYDROCORTISONE
     Dosage: 10 MG (1 TABLET), 1X/DAY (IN THE MORNING)
     Route: 048
     Dates: start: 202012

REACTIONS (3)
  - Diabetes mellitus [Unknown]
  - Therapeutic response decreased [Unknown]
  - Weight decreased [Unknown]

NARRATIVE: CASE EVENT DATE: 2014
